FAERS Safety Report 5419756-4 (Version None)
Quarter: 2007Q3

REPORT INFORMATION
  Report Type: 
  Country: None (occurrence: None)
  Receive Date: 20070820
  Receipt Date: 20070814
  Transmission Date: 20080115
  Serious: Yes (Hospitalization)
  Sender: FDA-Public Use
  Company Number: ZA-BRISTOL-MYERS SQUIBB COMPANY-13867312

PATIENT
  Age: 13 Day
  Sex: Male

DRUGS (8)
  1. ATAZANAVIR SULFATE [Suspect]
     Route: 064
  2. RITONAVIR [Suspect]
     Route: 064
  3. CHLOROMYCETIN [Concomitant]
     Indication: PROPHYLAXIS
     Dates: start: 20070717, end: 20070717
  4. KONAKION [Concomitant]
     Indication: PROPHYLAXIS
     Dates: start: 20070717, end: 20070717
  5. PENICILLIN G [Concomitant]
     Indication: PNEUMONIA
     Dates: start: 20070717, end: 20070720
  6. GENTALYN [Concomitant]
     Indication: PNEUMONIA
     Dates: start: 20070717, end: 20070720
  7. ABDEC [Concomitant]
     Indication: PROPHYLAXIS
     Dates: start: 20070730
  8. VITAMIN D [Concomitant]
     Indication: PROPHYLAXIS
     Dates: start: 20070730

REACTIONS (9)
  - ANAEMIA [None]
  - ANAEMIA NEONATAL [None]
  - ASPARTATE AMINOTRANSFERASE INCREASED [None]
  - BLOOD AMYLASE INCREASED [None]
  - BLOOD CREATININE DECREASED [None]
  - BLOOD POTASSIUM INCREASED [None]
  - BLOOD UREA DECREASED [None]
  - DRUG EXPOSURE DURING PREGNANCY [None]
  - PREGNANCY [None]
